FAERS Safety Report 10168947 (Version 1)
Quarter: 2014Q2

REPORT INFORMATION
  Report Type: Spontaneous
  Country: TW (occurrence: TW)
  Receive Date: 20140513
  Receipt Date: 20140513
  Transmission Date: 20141212
  Serious: Yes (Other)
  Sender: FDA-Public Use
  Company Number: TW-AMGEN-TWNSP2014034496

PATIENT
  Age: 71 Year
  Sex: Female

DRUGS (1)
  1. PROLIA [Suspect]
     Indication: OSTEOPOROSIS
     Dosage: UNK
     Route: 058

REACTIONS (10)
  - Sjogren^s syndrome [Recovered/Resolved]
  - Discomfort [Unknown]
  - Dry eye [Recovered/Resolved]
  - Nasal dryness [Recovered/Resolved]
  - Headache [Recovered/Resolved]
  - Lip dry [Recovered/Resolved]
  - Hypoaesthesia oral [Recovered/Resolved]
  - Lip swelling [Recovered/Resolved]
  - Dry throat [Recovered/Resolved]
  - Insomnia [Unknown]
